FAERS Safety Report 22182203 (Version 1)
Quarter: 2023Q2

REPORT INFORMATION
  Report Type: Spontaneous
  Country: US (occurrence: US)
  Receive Date: 20230406
  Receipt Date: 20230406
  Transmission Date: 20230722
  Serious: No
  Sender: FDA-Public Use
  Company Number: US-ABBVIE-4327026

PATIENT
  Sex: Female

DRUGS (1)
  1. SKYRIZI [Suspect]
     Active Substance: RISANKIZUMAB-RZAA
     Indication: Product used for unknown indication
     Dosage: FORM STRENGTH 150 MILLIGRAM
     Route: 058

REACTIONS (4)
  - Injection site haemorrhage [Unknown]
  - Mobility decreased [Unknown]
  - Headache [Unknown]
  - Injection site bruising [Unknown]
